FAERS Safety Report 15710557 (Version 2)
Quarter: 2018Q4

REPORT INFORMATION
  Report Type: Spontaneous
  Country: JP (occurrence: JP)
  Receive Date: 20181211
  Receipt Date: 20181213
  Transmission Date: 20190205
  Serious: Yes (Other)
  Sender: FDA-Public Use
  Company Number: JP-PFIZER INC-2018506802

PATIENT
  Sex: Female

DRUGS (3)
  1. PARIET [Concomitant]
     Active Substance: RABEPRAZOLE SODIUM
     Indication: GASTRIC ULCER
     Dosage: UNK
     Route: 048
  2. BONOTEO [Suspect]
     Active Substance: MINODRONIC ACID
     Dosage: UNK
     Route: 048
  3. CELECOX [Suspect]
     Active Substance: CELECOXIB
     Dosage: UNK
     Route: 048

REACTIONS (3)
  - Off label use [Unknown]
  - Bone disorder [Unknown]
  - Bone pain [Unknown]
